FAERS Safety Report 8823381 (Version 2)
Quarter: 2012Q4

REPORT INFORMATION
  Report Type: 
  Country: US (occurrence: US)
  Receive Date: 20121003
  Receipt Date: 20121206
  Transmission Date: 20130627
  Serious: Yes (Hospitalization, Other)
  Sender: FDA-Public Use
  Company Number: US-ALEXION-A201201850

PATIENT
  Age: 49 Year
  Sex: Male
  Weight: 82 kg

DRUGS (18)
  1. SOLIRIS 300MG [Suspect]
     Indication: HAEMOLYTIC URAEMIC SYNDROME
     Dosage: 1200 mg, single
     Route: 042
     Dates: start: 20120824, end: 20120824
  2. TYLENOL [Concomitant]
     Indication: PAIN
     Dosage: prn650 mg, qid
  3. ACYCLOVIR [Concomitant]
     Indication: PROPHYLAXIS
     Dosage: 200 mg, bid
  4. ACYCLOVIR [Concomitant]
     Dosage: 200 mg, bid
  5. VITAMIN D [Concomitant]
     Indication: SUPPLEMENTATION THERAPY
     Dosage: 2000 IU, qd
  6. CIPRO [Concomitant]
     Indication: PROPHYLAXIS
     Dosage: 500 mg, qd
  7. FLOMAX [Concomitant]
     Indication: BENIGN PROSTATIC HYPERPLASIA
     Dosage: 0.4 mg, qd
  8. FLONASE [Concomitant]
     Dosage: 0.5 mg, 2 puffs qd
  9. METOPROLOL [Concomitant]
     Indication: HYPERTENSION
     Dosage: 100 mg, bid
  10. MYFORTIC [Concomitant]
     Indication: IMMUNOSUPPRESSION
     Dosage: 360 mg, 2 tabs bid
  11. NORVASC [Concomitant]
     Indication: HYPERTENSION
     Dosage: 10 mg, qd
  12. OMEPRAZOLE [Concomitant]
     Dosage: 20 mg, bid
  13. ZOFRAN [Concomitant]
     Indication: NAUSEA
     Dosage: 4 mg , 1-2 tabs qid prn
  14. MIRALAX [Concomitant]
     Indication: CONSTIPATION
     Dosage: 17 g, prn
  15. PREDNISONE [Concomitant]
     Indication: RENAL TRANSPLANT
     Dosage: 10 mg, qd
  16. PROGRAF [Concomitant]
     Indication: IMMUNOSUPPRESSION
     Dosage: 1 mg, 3 caps tid
  17. RENVELA [Concomitant]
     Dosage: 800 mg, U1 tab tid
  18. SODIUM BICARBONATE [Concomitant]
     Dosage: 650 mg, tid

REACTIONS (3)
  - Graft loss [Unknown]
  - Transplant rejection [Recovered/Resolved with Sequelae]
  - Thrombotic microangiopathy [Recovered/Resolved with Sequelae]
